FAERS Safety Report 7245575-2 (Version None)
Quarter: 2011Q1

REPORT INFORMATION
  Report Type: 
  Country: None (occurrence: None)
  Receive Date: 20110126
  Receipt Date: 20110119
  Transmission Date: 20110831
  Serious: Yes (Hospitalization, Other)
  Sender: FDA-Public Use
  Company Number: US-AMGEN-USASP2011000429

PATIENT
  Age: 54 Year
  Sex: Female

DRUGS (1)
  1. ENBREL [Suspect]
     Indication: RHEUMATOID ARTHRITIS
     Dosage: 25 MG, QWK
     Dates: start: 20010116

REACTIONS (10)
  - MEDICAL DEVICE REMOVAL [None]
  - ARTHRALGIA [None]
  - SHOULDER ARTHROPLASTY [None]
  - OEDEMA PERIPHERAL [None]
  - INJECTION SITE PAIN [None]
  - HYSTERECTOMY [None]
  - HIGH FREQUENCY ABLATION [None]
  - LOCALISED INFECTION [None]
  - JOINT STABILISATION [None]
  - EXOSTOSIS [None]
